FAERS Safety Report 21091544 (Version 2)
Quarter: 2022Q3

REPORT INFORMATION
  Report Type: Spontaneous
  Country: US (occurrence: None)
  Receive Date: 20220717
  Receipt Date: 20220813
  Transmission Date: 20221026
  Serious: No
  Sender: FDA-Public Use
  Company Number: 2022A243670

PATIENT
  Age: 24226 Day
  Sex: Female

DRUGS (1)
  1. SYMBICORT [Suspect]
     Active Substance: BUDESONIDE\FORMOTEROL FUMARATE DIHYDRATE
     Dosage: 160/4.5 MCG, AS TWO PUFFS AS NEEDED AS REQUIRED
     Route: 055
     Dates: start: 20220525

REACTIONS (6)
  - Asthma [Unknown]
  - Product prescribing error [Unknown]
  - Product dose omission issue [Unknown]
  - Intentional device use issue [Unknown]
  - Device malfunction [Unknown]
  - Wrong technique in product usage process [Unknown]

NARRATIVE: CASE EVENT DATE: 20220325
